FAERS Safety Report 6111176-2 (Version None)
Quarter: 2009Q1

REPORT INFORMATION
  Report Type: 
  Country: None (occurrence: None)
  Receive Date: 20090309
  Receipt Date: 20090304
  Transmission Date: 20090719
  Serious: Yes (Death, Life-Threatening, Hospitalization)
  Sender: FDA-Public Use
  Company Number: 2009SP001680

PATIENT
  Age: 69 Year
  Sex: Male

DRUGS (13)
  1. TEMODAL [Suspect]
     Indication: GLIOBLASTOMA
     Dosage: 140 MG; QD
     Dates: start: 20080601, end: 20080701
  2. TEMODAL [Suspect]
     Indication: GLIOBLASTOMA
     Dosage: 140 MG; QD
     Dates: start: 20081112, end: 20081214
  3. TEMODAL [Suspect]
     Indication: GLIOBLASTOMA
     Dosage: 140 MG; QD
     Dates: start: 20080827
  4. TEMODAL [Suspect]
     Indication: GLIOBLASTOMA
     Dosage: 140 MG; QD
     Dates: start: 20081015
  5. RANITIDINE HCL [Concomitant]
  6. TROMBYL [Concomitant]
  7. HERMOLEPSIN RETARD (CARBAMAZEPINE) [Concomitant]
  8. BETAPRED [Concomitant]
  9. PAMOL [Concomitant]
  10. ZOPIKLON [Concomitant]
  11. DIAZEPAM [Concomitant]
  12. ERGENYL [Concomitant]
  13. IDEOS [Concomitant]

REACTIONS (4)
  - MULTI-ORGAN FAILURE [None]
  - SEPSIS [None]
  - THROMBOCYTOPENIA [None]
  - WHITE BLOOD CELL COUNT INCREASED [None]
